FAERS Safety Report 5196698-3 (Version None)
Quarter: 2007Q1

REPORT INFORMATION
  Report Type: 
  Country: None (occurrence: None)
  Receive Date: 20070103
  Receipt Date: 20061219
  Transmission Date: 20070707
  Serious: Yes (Hospitalization)
  Sender: FDA-Public Use
  Company Number: FR-BRISTOL-MYERS SQUIBB COMPANY-13622477

PATIENT
  Age: 27 Year
  Sex: Male
  Weight: 70 kg

DRUGS (5)
  1. REYATAZ [Suspect]
     Indication: HIV INFECTION
     Route: 048
     Dates: start: 20060822
  2. TELZIR [Suspect]
     Indication: HIV INFECTION
     Dates: start: 20060822
  3. NORVIR [Suspect]
     Indication: HIV INFECTION
     Dates: start: 20060822
  4. PEGASYS [Concomitant]
  5. RIBAVIRIN [Concomitant]

REACTIONS (3)
  - BLOOD BILIRUBIN INCREASED [None]
  - CONDITION AGGRAVATED [None]
  - EPISTAXIS [None]
